FAERS Safety Report 20776016 (Version 1)
Quarter: 2022Q2

REPORT INFORMATION
  Report Type: Spontaneous
  Country: US (occurrence: None)
  Receive Date: 20220502
  Receipt Date: 20220502
  Transmission Date: 20220720
  Serious: Yes (Hospitalization)
  Sender: FDA-Public Use
  Company Number: None

PATIENT
  Sex: Female

DRUGS (2)
  1. ESTRADIOL [Suspect]
     Active Substance: ESTRADIOL
     Indication: Infertility female
     Dosage: FREQUENCY : EVERY OTHER DAY;?
     Route: 062
     Dates: start: 20220325
  2. PROGESTERONE [Suspect]
     Active Substance: PROGESTERONE
     Indication: Infertility female
     Dosage: FREQUENCY : DAILY;?
     Route: 030
     Dates: start: 20220325

REACTIONS (1)
  - Drug hypersensitivity [None]
